FAERS Safety Report 10418673 (Version 3)
Quarter: 2014Q4

REPORT INFORMATION
  Report Type: Spontaneous
  Country: US (occurrence: US)
  Receive Date: 20140829
  Receipt Date: 20141030
  Transmission Date: 20150528
  Serious: Yes (Hospitalization, Other)
  Sender: FDA-Public Use
  Company Number: US-B.I. PHARMACEUTICALS,INC./RIDGEFIELD-2014-BI-39821BP

PATIENT
  Age: 54 Year
  Sex: Male

DRUGS (3)
  1. PRADAXA [Suspect]
     Active Substance: DABIGATRAN ETEXILATE MESYLATE
     Indication: PRODUCT USED FOR UNKNOWN INDICATION
     Dosage: 300 MG
     Route: 048
     Dates: start: 20120718
  2. COUMADIN [Suspect]
     Active Substance: WARFARIN SODIUM
     Indication: PULMONARY EMBOLISM
     Dosage: 5 MG
     Route: 048
     Dates: end: 201211
  3. SIMVASTATIN. [Suspect]
     Active Substance: SIMVASTATIN
     Indication: PRODUCT USED FOR UNKNOWN INDICATION
     Dosage: 20 MG
     Route: 048
     Dates: end: 201209

REACTIONS (8)
  - Oesophagitis [Unknown]
  - Nephrolithiasis [Unknown]
  - Rhabdomyolysis [Unknown]
  - Haemoglobin decreased [Unknown]
  - Haematemesis [Unknown]
  - Haemorrhoidal haemorrhage [Unknown]
  - Duodenitis [Unknown]
  - Vomiting [Unknown]

NARRATIVE: CASE EVENT DATE: 201209
